FAERS Safety Report 18154035 (Version 2)
Quarter: 2020Q4

REPORT INFORMATION
  Report Type: Spontaneous
  Country: US (occurrence: US)
  Receive Date: 20200816
  Receipt Date: 20201015
  Transmission Date: 20210113
  Serious: No
  Sender: FDA-Public Use
  Company Number: US-ASTRAZENECA-2020SF01020

PATIENT
  Sex: Female
  Weight: 58.1 kg

DRUGS (1)
  1. SYMBICORT [Suspect]
     Active Substance: BUDESONIDE\FORMOTEROL FUMARATE DIHYDRATE
     Indication: CHRONIC OBSTRUCTIVE PULMONARY DISEASE
     Dosage: 160/4.5 MCG, 2 PUFFS TWICE DAILY (2 PUFFS IN THE MORNING AND 2 PUFFS AT NIGHT), 120 DOSES
     Route: 055
     Dates: start: 2018

REACTIONS (3)
  - Intentional device misuse [Unknown]
  - Product taste abnormal [Unknown]
  - Drug delivery system issue [Unknown]
